FAERS Safety Report 17088379 (Version 1)
Quarter: 2019Q4

REPORT INFORMATION
  Report Type: Spontaneous
  Country: US (occurrence: US)
  Receive Date: 20191128
  Receipt Date: 20191128
  Transmission Date: 20200122
  Serious: No
  Sender: FDA-Public Use
  Company Number: US-CELGENEUS-USA-20191108458

PATIENT
  Sex: Male

DRUGS (2)
  1. OTEZLA [Suspect]
     Active Substance: APREMILAST
     Dosage: STARTER PACK (HALF DOSE (REDUCED DOSE)
     Route: 048
  2. OTEZLA [Suspect]
     Active Substance: APREMILAST
     Indication: PRODUCT USED FOR UNKNOWN INDICATION
     Dosage: STARTER PACK
     Route: 048

REACTIONS (1)
  - Abdominal discomfort [Unknown]
